FAERS Safety Report 4445097-8 (Version None)
Quarter: 2004Q3

REPORT INFORMATION
  Report Type: 
  Country: None (occurrence: None)
  Receive Date: 20040907
  Receipt Date: 20040820
  Transmission Date: 20050211
  Serious: Yes (Death)
  Sender: FDA-Public Use
  Company Number: L04-ESP-03962-17

PATIENT
  Age: 36 Year
  Sex: Female

DRUGS (5)
  1. CITALOPRAM [Suspect]
  2. ALCOHOL [Suspect]
  3. DIAZEPAM [Suspect]
  4. NORDIAZEPAM(NORDAZEPAM) [Suspect]
  5. DEXTROMETHORPHAN HYDROBROMIDE [Suspect]

REACTIONS (3)
  - COMPLETED SUICIDE [None]
  - POISONING [None]
  - TOXICOLOGIC TEST ABNORMAL [None]
